FAERS Safety Report 13014192 (Version 1)
Quarter: 2016Q4

REPORT INFORMATION
  Report Type: Spontaneous
  Country: CH (occurrence: CH)
  Receive Date: 20161209
  Receipt Date: 20161209
  Transmission Date: 20170207
  Serious: Yes (Life-Threatening, Hospitalization)
  Sender: FDA-Public Use
  Company Number: CH-SWAN PHARMACEUTICALS, LLC-2016MYN000938

PATIENT
  Age: 77 Year
  Sex: Female

DRUGS (9)
  1. AMIODARONE HYDROCHLORIDE. [Suspect]
     Active Substance: AMIODARONE HYDROCHLORIDE
     Indication: HYPERTENSION
  2. ATORVASTATIN [Concomitant]
     Active Substance: ATORVASTATIN
  3. DOCETAXEL. [Suspect]
     Active Substance: DOCETAXEL
     Indication: HER-2 POSITIVE BREAST CANCER
     Dosage: 100 OR 75 MG M2, QWEEK
  4. ASPIRIN                            /00002701/ [Concomitant]
     Active Substance: ASPIRIN
  5. TORASEMIDE [Concomitant]
     Active Substance: TORSEMIDE
  6. RAMIPRIL. [Concomitant]
     Active Substance: RAMIPRIL
  7. PACLITAXEL. [Suspect]
     Active Substance: PACLITAXEL
     Indication: HER-2 POSITIVE BREAST CANCER
     Dosage: 80 MG M2, QWEEK
  8. AMIODARONE HYDROCHLORIDE. [Suspect]
     Active Substance: AMIODARONE HYDROCHLORIDE
     Indication: HYPERLIPIDAEMIA
  9. AMIODARONE HYDROCHLORIDE. [Suspect]
     Active Substance: AMIODARONE HYDROCHLORIDE
     Indication: PALPITATIONS

REACTIONS (3)
  - Potentiating drug interaction [Recovering/Resolving]
  - Skin toxicity [Recovering/Resolving]
  - Mucosal toxicity [Recovering/Resolving]
